FAERS Safety Report 15804587 (Version 1)
Quarter: 2019Q1

REPORT INFORMATION
  Report Type: Spontaneous
  Country: TR (occurrence: TR)
  Receive Date: 20190109
  Receipt Date: 20190109
  Transmission Date: 20190417
  Serious: Yes (Other)
  Sender: FDA-Public Use
  Company Number: PHHY2019TR001335

PATIENT
  Age: 1 Day
  Sex: Male

DRUGS (1)
  1. KETOTIFEN [Suspect]
     Active Substance: KETOTIFEN
     Indication: URTICARIA PIGMENTOSA
     Dosage: UNK
     Route: 065

REACTIONS (10)
  - Flushing [Unknown]
  - Hypotension [Recovered/Resolved]
  - Bradycardia [Recovering/Resolving]
  - Respiratory distress [Recovered/Resolved]
  - Cyanosis [Unknown]
  - Face oedema [Unknown]
  - Eye oedema [Recovered/Resolved]
  - Anaphylactic reaction [Unknown]
  - General physical health deterioration [Unknown]
  - Product use in unapproved indication [Unknown]
